FAERS Safety Report 8197969-9 (Version None)
Quarter: 2012Q1

REPORT INFORMATION
  Report Type: 
  Country: None (occurrence: None)
  Receive Date: 20120309
  Receipt Date: 20111203
  Transmission Date: 20120608
  Serious: No
  Sender: FDA-Public Use
  Company Number: US-AMGEN-USASP2011064377

PATIENT
  Sex: Female

DRUGS (2)
  1. ZOMETA [Concomitant]
  2. XGEVA [Suspect]
     Indication: PRODUCT USED FOR UNKNOWN INDICATION

REACTIONS (2)
  - INFUSION RELATED REACTION [None]
  - MALAISE [None]
